FAERS Safety Report 14766662 (Version 2)
Quarter: 2018Q2

REPORT INFORMATION
  Report Type: Report from Study
  Country: None (occurrence: US)
  Receive Date: 20180417
  Receipt Date: 20180425
  Transmission Date: 20180711
  Serious: No
  Sender: FDA-Public Use
  Company Number: US-ABBVIE-18K-163-2322020-00

PATIENT
  Age: 73 Year
  Sex: Female
  Weight: 80.36 kg

DRUGS (3)
  1. HUMIRA [Suspect]
     Active Substance: ADALIMUMAB
     Indication: RHEUMATOID ARTHRITIS
     Route: 058
     Dates: start: 20170824
  2. HYDROMORPHONE [Suspect]
     Active Substance: HYDROMORPHONE
     Indication: PAIN
     Route: 065
     Dates: start: 2018
  3. FENTANYL. [Suspect]
     Active Substance: FENTANYL
     Indication: PAIN
     Route: 065
     Dates: start: 2018

REACTIONS (11)
  - Drug ineffective [Not Recovered/Not Resolved]
  - Product administered at inappropriate site [Recovered/Resolved]
  - Joint swelling [Not Recovered/Not Resolved]
  - Arthralgia [Not Recovered/Not Resolved]
  - Somnolence [Not Recovered/Not Resolved]
  - Injection site pain [Recovered/Resolved]
  - Peripheral swelling [Not Recovered/Not Resolved]
  - Injection site bruising [Recovering/Resolving]
  - Pain in extremity [Not Recovered/Not Resolved]
  - Pain in extremity [Not Recovered/Not Resolved]
  - Injection site pain [Recovering/Resolving]

NARRATIVE: CASE EVENT DATE: 20170824
